FAERS Safety Report 12897939 (Version 1)
Quarter: 2016Q4

REPORT INFORMATION
  Report Type: Spontaneous
  Country: US (occurrence: US)
  Receive Date: 20161031
  Receipt Date: 20161031
  Transmission Date: 20170207
  Serious: No
  Sender: FDA-Public Use
  Company Number: US-MISSION PHARMACAL COMPANY-1059085

PATIENT
  Age: 56 Year
  Sex: Female

DRUGS (2)
  1. BENADRYL [Concomitant]
     Active Substance: DIPHENHYDRAMINE HYDROCHLORIDE
     Route: 065
  2. THIOLA [Suspect]
     Active Substance: TIOPRONIN
     Indication: CYSTINURIA
     Route: 065
     Dates: start: 20140911

REACTIONS (6)
  - Crystal urine [Unknown]
  - Dry mouth [Unknown]
  - Dry skin [Unknown]
  - Dysgeusia [Unknown]
  - Drug dose omission [Unknown]
  - Pruritus [Unknown]
